FAERS Safety Report 4827845-8 (Version None)
Quarter: 2005Q4

REPORT INFORMATION
  Report Type: 
  Country: None (occurrence: None)
  Receive Date: 20051110
  Receipt Date: 20050325
  Transmission Date: 20060501
  Serious: Yes (Hospitalization)
  Sender: FDA-Public Use
  Company Number: 2005BI006655

PATIENT
  Age: 38 Year
  Sex: Female
  Weight: 102.0593 kg

DRUGS (1)
  1. AVONEX [Suspect]
     Indication: MULTIPLE SCLEROSIS
     Dosage: 30 UG; QW; IM
     Route: 030
     Dates: start: 20050318, end: 20050318

REACTIONS (2)
  - CHEST DISCOMFORT [None]
  - HEMIPARESIS [None]
